FAERS Safety Report 11788424 (Version 3)
Quarter: 2016Q1

REPORT INFORMATION
  Report Type: Spontaneous
  Country: US (occurrence: US)
  Receive Date: 20151201
  Receipt Date: 20160205
  Transmission Date: 20160525
  Serious: Yes (Hospitalization)
  Sender: FDA-Public Use
  Company Number: US-BEH-2015055988

PATIENT
  Age: 56 Year
  Sex: Female
  Weight: 134 kg

DRUGS (36)
  1. METOPROLOL. [Concomitant]
     Active Substance: METOPROLOL
  2. ZEMAIRA [Suspect]
     Active Substance: .ALPHA.1-PROTEINASE INHIBITOR HUMAN
     Dates: start: 20140103
  3. LEVOCETIRIZINE [Concomitant]
     Active Substance: LEVOCETIRIZINE
  4. FOLIC ACID. [Concomitant]
     Active Substance: FOLIC ACID
  5. VITAMIN D3 [Concomitant]
     Active Substance: CHOLECALCIFEROL
  6. CYMBALTA [Concomitant]
     Active Substance: DULOXETINE HYDROCHLORIDE
  7. ZEMAIRA [Suspect]
     Active Substance: .ALPHA.1-PROTEINASE INHIBITOR HUMAN
     Indication: ALPHA-1 ANTI-TRYPSIN DEFICIENCY
     Dosage: 996 MG/VL
     Route: 042
     Dates: start: 20151023
  8. DIPHENHYDRAMINE. [Concomitant]
     Active Substance: DIPHENHYDRAMINE
  9. LEVEMIR [Concomitant]
     Active Substance: INSULIN DETEMIR
  10. PROGRAF [Concomitant]
     Active Substance: TACROLIMUS\TACROLIMUS ANHYDROUS
  11. FUROSEMIDE. [Concomitant]
     Active Substance: FUROSEMIDE
  12. MYCOPHENOLATE [Concomitant]
     Active Substance: MYCOPHENOLIC ACID
  13. BACTRIM [Concomitant]
     Active Substance: SULFAMETHOXAZOLE\TRIMETHOPRIM
  14. CHEWABLE MULTIVITAMIN [Concomitant]
  15. VITAMIN B6 [Concomitant]
     Active Substance: PYRIDOXINE HYDROCHLORIDE
  16. LIDOCAINE. [Concomitant]
     Active Substance: LIDOCAINE
  17. EPIPEN [Concomitant]
     Active Substance: EPINEPHRINE
  18. NEXIUM [Concomitant]
     Active Substance: ESOMEPRAZOLE MAGNESIUM
  19. INSULIN PEN [Concomitant]
     Active Substance: INSULIN NOS
  20. CALCI CHEW [Concomitant]
  21. SODIUM CHLORIDE. [Concomitant]
     Active Substance: SODIUM CHLORIDE
  22. VITAMIN B12 [Concomitant]
     Active Substance: CYANOCOBALAMIN
  23. TRAMADOL. [Concomitant]
     Active Substance: TRAMADOL
  24. LYRICA [Concomitant]
     Active Substance: PREGABALIN
  25. NOVOLOG [Concomitant]
     Active Substance: INSULIN ASPART
  26. XANAX [Concomitant]
     Active Substance: ALPRAZOLAM
  27. NOXAFIL [Concomitant]
     Active Substance: POSACONAZOLE
  28. AMBIEN [Concomitant]
     Active Substance: ZOLPIDEM TARTRATE
  29. SENOKOT [Concomitant]
     Active Substance: SENNOSIDES
  30. MELATONIN [Concomitant]
     Active Substance: MELATONIN
  31. XYZAL [Concomitant]
     Active Substance: LEVOCETIRIZINE DIHYDROCHLORIDE
  32. DIPHENHYDRAMINE HYDROCHLORIDE. [Concomitant]
     Active Substance: DIPHENHYDRAMINE HYDROCHLORIDE
  33. PREDNISONE. [Concomitant]
     Active Substance: PREDNISONE
  34. HEPARIN [Concomitant]
     Active Substance: HEPARIN SODIUM
  35. TIZANIDINE. [Concomitant]
     Active Substance: TIZANIDINE
  36. NORCO [Concomitant]
     Active Substance: ACETAMINOPHEN\HYDROCODONE BITARTRATE

REACTIONS (2)
  - Rhinovirus infection [Recovered/Resolved]
  - Respiratory tract infection [Recovered/Resolved]

NARRATIVE: CASE EVENT DATE: 20151023
